FAERS Safety Report 17840747 (Version 1)
Quarter: 2020Q2

REPORT INFORMATION
  Report Type: Spontaneous
  Country: CN (occurrence: CN)
  Receive Date: 20200529
  Receipt Date: 20200529
  Transmission Date: 20200714
  Serious: Yes (Life-Threatening)
  Sender: FDA-Public Use
  Company Number: CN-PFIZER INC-2020211442

PATIENT
  Age: 66 Year
  Sex: Male
  Weight: 57 kg

DRUGS (1)
  1. TAZOCIN [Suspect]
     Active Substance: PIPERACILLIN SODIUM\TAZOBACTAM SODIUM
     Indication: URETERITIS
     Dosage: 4.5 G, 3X/DAY
     Route: 041
     Dates: start: 20200525, end: 20200525

REACTIONS (5)
  - Tachypnoea [Recovering/Resolving]
  - Hypersensitivity [Recovering/Resolving]
  - Cyanosis [Recovering/Resolving]
  - Laryngeal oedema [Recovering/Resolving]
  - Coma [Recovering/Resolving]

NARRATIVE: CASE EVENT DATE: 20200525
